FAERS Safety Report 8912074 (Version 3)
Quarter: 2012Q4

REPORT INFORMATION
  Report Type: 
  Country: US (occurrence: US)
  Receive Date: 20121116
  Receipt Date: 20121127
  Transmission Date: 20130627
  Serious: Yes (Death)
  Sender: FDA-Public Use
  Company Number: US-PFIZER INC-2011308453

PATIENT
  Age: 18 Year
  Sex: Female

DRUGS (4)
  1. DILTIAZEM HCL [Suspect]
     Indication: SUICIDE
     Route: 048
  2. PREGABALIN [Suspect]
     Route: 048
  3. ESOMEPRAZOLE [Suspect]
     Route: 048
  4. METFORMIN HYDROCHLORIDE [Suspect]
     Route: 048

REACTIONS (2)
  - Completed suicide [Fatal]
  - Suicidal ideation [None]
